FAERS Safety Report 24842889 (Version 1)
Quarter: 2025Q1

REPORT INFORMATION
  Report Type: Other
  Country: AU (occurrence: AU)
  Receive Date: 20250115
  Receipt Date: 20250115
  Transmission Date: 20250408
  Serious: Yes (Other)
  Sender: LUPIN
  Company Number: AU-LUPIN PHARMACEUTICALS INC.-2025-00109

PATIENT

DRUGS (1)
  1. CEPHALEXIN [Suspect]
     Active Substance: CEPHALEXIN
     Indication: Product used for unknown indication
     Route: 065

REACTIONS (7)
  - Chest discomfort [Unknown]
  - Dizziness [Unknown]
  - Dyspnoea [Unknown]
  - Loss of consciousness [Unknown]
  - Nausea [Unknown]
  - Periorbital swelling [Unknown]
  - Urticaria [Unknown]
